FAERS Safety Report 9922006 (Version 1)
Quarter: 2014Q1

REPORT INFORMATION
  Report Type: Spontaneous
  Country: US (occurrence: None)
  Receive Date: 20140221
  Receipt Date: 20140221
  Transmission Date: 20141002
  Serious: Yes (Other)
  Sender: FDA-Public Use
  Company Number: None

PATIENT
  Age: 87 Year
  Sex: Female
  Weight: 58.97 kg

DRUGS (11)
  1. PRADAXA [Suspect]
     Indication: CARDIAC FIBRILLATION
     Route: 048
     Dates: start: 20140131, end: 20140203
  2. PREMARIN [Concomitant]
  3. VIT [Concomitant]
  4. CALCIUM CITRATE [Concomitant]
  5. DIGESTINE EMZYMES [Concomitant]
  6. METAMUCIL [Concomitant]
  7. ATENOLOL [Concomitant]
  8. AMLODIPINE [Concomitant]
  9. WARFARIN [Concomitant]
  10. VIT E [Concomitant]
  11. ARTHRISI PAIN RELIEF [Concomitant]

REACTIONS (2)
  - Pain in extremity [None]
  - Gait disturbance [None]
